FAERS Safety Report 19561101 (Version 4)
Quarter: 2021Q4

REPORT INFORMATION
  Report Type: Spontaneous
  Country: JP (occurrence: JP)
  Receive Date: 20210716
  Receipt Date: 20211210
  Transmission Date: 20220303
  Serious: Yes (Life-Threatening, Hospitalization, Other)
  Sender: FDA-Public Use
  Company Number: JP-GLAXOSMITHKLINE-JP2020JPN195323

PATIENT
  Age: 22 Year
  Sex: Male
  Weight: 66 kg

DRUGS (6)
  1. ALBUTEROL [Interacting]
     Active Substance: ALBUTEROL
     Indication: Asthma
     Dosage: 0.3ML ONCE A DAY AND 0.4ML ONCE A DAY, BID
     Route: 055
     Dates: start: 20200915, end: 20200915
  2. ALBUTEROL [Interacting]
     Active Substance: ALBUTEROL
     Dosage: 0.3 ML, 1D
     Route: 055
     Dates: start: 20200917, end: 20200917
  3. DEXAMETHASONE SODIUM PHOSPHATE [Interacting]
     Active Substance: DEXAMETHASONE SODIUM PHOSPHATE
     Indication: Asthma
     Dosage: 6.6 MG, QD
     Route: 041
     Dates: start: 20200915, end: 20200915
  4. ELECTROLYTES NOS [Suspect]
     Active Substance: ELECTROLYTES NOS
     Indication: Hypokalaemia
     Dosage: UNK
     Dates: start: 20200916, end: 20200919
  5. CEFTRIAXONE SODIUM [Concomitant]
     Active Substance: CEFTRIAXONE SODIUM
     Dosage: 2 G
     Route: 041
     Dates: start: 20200915
  6. LACTEC-D [Concomitant]

REACTIONS (6)
  - Hypokalaemia [Recovering/Resolving]
  - Paralysis [Recovering/Resolving]
  - Muscular weakness [Recovering/Resolving]
  - Blood glucose increased [Recovering/Resolving]
  - Blood potassium increased [Recovering/Resolving]
  - Drug interaction [Unknown]

NARRATIVE: CASE EVENT DATE: 20200915
